FAERS Safety Report 4707258-X (Version None)
Quarter: 2005Q3

REPORT INFORMATION
  Report Type: 
  Country: None (occurrence: None)
  Receive Date: 20050701
  Receipt Date: 20050622
  Transmission Date: 20060218
  Serious: Yes (Hospitalization)
  Sender: FDA-Public Use
  Company Number: GBWYE765322JUN05

PATIENT
  Age: 74 Year
  Sex: Female

DRUGS (14)
  1. LODINE [Suspect]
     Indication: PAIN
     Dosage: 600 MG 1X PER 1 DAY ORAL
     Route: 048
     Dates: end: 20050601
  2. MORPHINE SULFATE [Concomitant]
  3. ALLOPURINOL [Concomitant]
  4. QUININE SULFATE [Concomitant]
  5. LOPRAZOLAM (LOPRAZOLAM) [Concomitant]
  6. LANSOPRAZOLE [Concomitant]
  7. ATENOLOL [Concomitant]
  8. PRAVASTATIN [Concomitant]
  9. FUROSEMIDE [Concomitant]
  10. LEVOTHYROXINE SODIUM [Concomitant]
  11. DOXAZOSIN (DOXAZOSIN) [Concomitant]
  12. SIMVASTATIN [Concomitant]
  13. TEMAZEPAM [Concomitant]
  14. ALBUTEROL SULFATE HFA [Concomitant]

REACTIONS (2)
  - FAECES DISCOLOURED [None]
  - GASTRITIS [None]
